FAERS Safety Report 4336157-0 (Version None)
Quarter: 2004Q1

REPORT INFORMATION
  Report Type: 
  Country: None (occurrence: None)
  Receive Date: 20040329
  Receipt Date: 20040107
  Transmission Date: 20041129
  Serious: No
  Sender: FDA-Public Use
  Company Number: USA040155958

PATIENT
  Age: 53 Year
  Sex: Female
  Weight: 75 kg

DRUGS (6)
  1. STRATTERA [Suspect]
     Indication: ATTENTION DEFICIT/HYPERACTIVITY DISORDER
     Dosage: 65 MG/DAY
     Dates: start: 20031001
  2. ALTACE [Concomitant]
  3. LIPITOR [Concomitant]
  4. ESTRATEST [Concomitant]
  5. LOPID [Concomitant]
  6. PREMPRO [Concomitant]

REACTIONS (7)
  - ERYTHEMA [None]
  - FEELING HOT [None]
  - INFLUENZA [None]
  - PARAESTHESIA [None]
  - SKIN LESION [None]
  - URTICARIA [None]
  - WEIGHT DECREASED [None]
